FAERS Safety Report 9832172 (Version 1)
Quarter: 2014Q1

REPORT INFORMATION
  Report Type: Spontaneous
  Country: US (occurrence: US)
  Receive Date: 20140121
  Receipt Date: 20140121
  Transmission Date: 20141002
  Serious: Yes (Hospitalization)
  Sender: FDA-Public Use
  Company Number: US-TEVA-456577USA

PATIENT
  Sex: Female

DRUGS (1)
  1. COPAXONE [Suspect]
     Indication: MULTIPLE SCLEROSIS
     Dates: start: 20060818

REACTIONS (3)
  - Fall [Unknown]
  - Patella fracture [Unknown]
  - Head injury [Unknown]
